FAERS Safety Report 5100796-X (Version None)
Quarter: 2006Q3

REPORT INFORMATION
  Report Type: 
  Country: None (occurrence: None)
  Receive Date: 20060906
  Receipt Date: 20060822
  Transmission Date: 20061208
  Serious: Yes (Other)
  Sender: FDA-Public Use
  Company Number: 2006102839

PATIENT
  Sex: Male
  Weight: 65.7716 kg

DRUGS (5)
  1. VIAGRA [Suspect]
     Indication: ERECTILE DYSFUNCTION
     Dosage: (25 MG)
     Dates: end: 20060101
  2. ASPIRIN [Concomitant]
  3. CENTRUM SILVER (ASCORBIC ACID, CALCIUM, MINERALS NOS, RETINOL, TOCOPHE [Concomitant]
  4. VITAMIN C (VITAMIN C) [Concomitant]
  5. VITAMIN E [Concomitant]

REACTIONS (3)
  - FEELING ABNORMAL [None]
  - HEADACHE [None]
  - VISUAL ACUITY REDUCED [None]
